FAERS Safety Report 4508364-5 (Version None)
Quarter: 2004Q4

REPORT INFORMATION
  Report Type: 
  Country: None (occurrence: None)
  Receive Date: 20041123
  Receipt Date: 20040119
  Transmission Date: 20050328
  Serious: No
  Sender: FDA-Public Use
  Company Number: US-GLAXOSMITHKLINE-A0493973A

PATIENT
  Age: 61 Year
  Sex: Female

DRUGS (5)
  1. WELLBUTRIN [Suspect]
     Indication: DEPRESSION
     Dosage: 1TAB PER DAY
     Route: 048
     Dates: start: 20030501, end: 20040601
  2. PREMPRO [Concomitant]
  3. BEXTRA [Concomitant]
  4. OXYCONTIN [Concomitant]
  5. ZANAFLEX [Concomitant]

REACTIONS (1)
  - ANXIETY [None]
